FAERS Safety Report 23013416 (Version 1)
Quarter: 2023Q4

REPORT INFORMATION
  Report Type: Spontaneous
  Country: US (occurrence: US)
  Receive Date: 20231001
  Receipt Date: 20231001
  Transmission Date: 20240110
  Serious: No
  Sender: FDA-Public Use
  Company Number: US-SA-SAC20230927000284

PATIENT
  Age: 37 Year
  Sex: Female

DRUGS (1)
  1. DUPIXENT [Suspect]
     Active Substance: DUPILUMAB
     Indication: Dermatitis
     Dosage: 600 MG, 1X
     Route: 058
     Dates: start: 20230918, end: 20230918

REACTIONS (4)
  - Peripheral swelling [Recovered/Resolved]
  - Dry skin [Recovered/Resolved]
  - Skin tightness [Recovered/Resolved]
  - Product use in unapproved indication [Unknown]

NARRATIVE: CASE EVENT DATE: 20230918
